FAERS Safety Report 6483541-5 (Version None)
Quarter: 2009Q4

REPORT INFORMATION
  Report Type: 
  Country: None (occurrence: None)
  Receive Date: 20091208
  Receipt Date: 20091208
  Transmission Date: 20100525
  Serious: No
  Sender: FDA-Public Use
  Company Number: None

PATIENT
  Age: 42 Year
  Sex: Male
  Weight: 116.9 kg

DRUGS (1)
  1. VARENECLINE [Suspect]
     Indication: TOBACCO ABUSE
     Dosage: 0.5 MG EVERY DAY PO
     Route: 048
     Dates: start: 20081021, end: 20081223

REACTIONS (3)
  - DEPRESSION [None]
  - EMOTIONAL DISORDER [None]
  - MOOD ALTERED [None]
